FAERS Safety Report 7462875-1 (Version None)
Quarter: 2011Q2

REPORT INFORMATION
  Report Type: 
  Country: None (occurrence: None)
  Receive Date: 20110506
  Receipt Date: 20101228
  Transmission Date: 20111010
  Serious: Yes (Hospitalization)
  Sender: FDA-Public Use
  Company Number: US-BAYER-2010-002232

PATIENT
  Age: 18 Year
  Sex: Female
  Weight: 88.435 kg

DRUGS (5)
  1. YAZ [Suspect]
     Indication: MENORRHAGIA
     Dosage: UNK
     Route: 048
     Dates: start: 20080714, end: 20091001
  2. YAZ [Suspect]
     Indication: PREMENSTRUAL SYNDROME
     Dosage: UNK
     Dates: start: 20100401
  3. LOESTRIN 1.5/30 [Concomitant]
     Dosage: UNK
     Dates: start: 20091109
  4. YAZ [Suspect]
     Indication: MENSTRUATION IRREGULAR
     Dosage: UNK
     Dates: start: 20090701, end: 20090901
  5. YAZ [Suspect]
     Indication: DYSMENORRHOEA
     Dosage: UNK
     Dates: start: 20080601, end: 20091001

REACTIONS (2)
  - GALLBLADDER NON-FUNCTIONING [None]
  - PAIN [None]
